FAERS Safety Report 20567135 (Version 1)
Quarter: 2022Q1

REPORT INFORMATION
  Report Type: Spontaneous
  Country: US (occurrence: US)
  Receive Date: 20220308
  Receipt Date: 20220308
  Transmission Date: 20220423
  Serious: Yes (Other)
  Sender: FDA-Public Use
  Company Number: US-PFIZER INC-202200308328

PATIENT
  Age: 61 Year
  Sex: Female

DRUGS (1)
  1. RAPAMUNE [Suspect]
     Active Substance: SIROLIMUS
     Indication: Heart transplant
     Dosage: 1 MG, 2X/DAY (TAKE 1 TABLET BY MOUTH BID)
     Route: 048

REACTIONS (2)
  - Nervous system disorder [Unknown]
  - Off label use [Unknown]
